FAERS Safety Report 12552876 (Version 1)
Quarter: 2016Q3

REPORT INFORMATION
  Report Type: Spontaneous
  Country: US (occurrence: US)
  Receive Date: 20160713
  Receipt Date: 20160713
  Transmission Date: 20161109
  Serious: No
  Sender: FDA-Public Use
  Company Number: US-009507513-1607USA000394

PATIENT
  Age: 34 Year
  Sex: Female
  Weight: 67.12 kg

DRUGS (1)
  1. NEXPLANON [Suspect]
     Active Substance: ETONOGESTREL
     Indication: CONTRACEPTION
     Dosage: EVERY 3 YEARS, LEFT ARM
     Dates: start: 20151117

REACTIONS (3)
  - Irritability [Unknown]
  - Menstruation normal [Unknown]
  - Mood altered [Unknown]

NARRATIVE: CASE EVENT DATE: 201511
